FAERS Safety Report 8786187 (Version 5)
Quarter: 2012Q4

REPORT INFORMATION
  Report Type: 
  Country: GB (occurrence: GB)
  Receive Date: 20120914
  Receipt Date: 20121119
  Transmission Date: 20130627
  Serious: Yes (Hospitalization, Disabling, Other)
  Sender: FDA-Public Use
  Company Number: GB-ABBOTT-12P-167-0974728-00

PATIENT
  Age: 75 Year
  Sex: Male

DRUGS (2)
  1. LEUPRORELIN ACETATE [Suspect]
     Indication: PROSTATE CANCER
     Route: 050
     Dates: start: 20111230
  2. BICALUTAMIDE [Concomitant]
     Indication: PROSTATE CANCER
     Dates: start: 20111123

REACTIONS (9)
  - Oedema peripheral [Recovered/Resolved]
  - Myalgia [Unknown]
  - Sepsis [Recovered/Resolved]
  - Eczema [Unknown]
  - Injection site inflammation [Unknown]
  - Dermatitis allergic [Recovered/Resolved]
  - Rash [Recovered/Resolved]
  - Pruritus [Recovered/Resolved]
  - Dermatitis [Recovered/Resolved]
